FAERS Safety Report 9705721 (Version 1)
Quarter: 2013Q4

REPORT INFORMATION
  Report Type: Spontaneous
  Country: US (occurrence: US)
  Receive Date: 20131122
  Receipt Date: 20131122
  Transmission Date: 20140711
  Serious: No
  Sender: FDA-Public Use
  Company Number: US-GILEAD-2008-0017825

PATIENT
  Sex: Female

DRUGS (3)
  1. LETAIRIS [Suspect]
     Indication: PULMONARY ARTERIAL HYPERTENSION
     Dates: start: 20080620, end: 20080716
  2. OXYGEN [Concomitant]
  3. LASIX [Concomitant]

REACTIONS (9)
  - Local swelling [None]
  - Blood glucose increased [None]
  - Eye pain [None]
  - Chest pain [None]
  - Arrhythmia [None]
  - Lymphadenopathy [None]
  - Fatigue [None]
  - Sinusitis [None]
  - Dyspnoea [None]
